FAERS Safety Report 17525640 (Version 1)
Quarter: 2020Q1

REPORT INFORMATION
  Report Type: Spontaneous
  Country: US (occurrence: US)
  Receive Date: 20200311
  Receipt Date: 20200311
  Transmission Date: 20200409
  Serious: Yes (Other)
  Sender: FDA-Public Use
  Company Number: None

PATIENT
  Age: 86 Year
  Sex: Female
  Weight: 73.8 kg

DRUGS (16)
  1. IBRANCE [Suspect]
     Active Substance: PALBOCICLIB
     Indication: BREAST CANCER
     Route: 048
     Dates: start: 20200218, end: 20200307
  2. NYSTATIN. [Concomitant]
     Active Substance: NYSTATIN
  3. AZITHROMYCIN ANHYDROUS. [Concomitant]
     Active Substance: AZITHROMYCIN ANHYDROUS
  4. CALCIUM + D3 [Concomitant]
     Active Substance: CALCIUM\CHOLECALCIFEROL
  5. RANITIDINE. [Concomitant]
     Active Substance: RANITIDINE
  6. ARIMIDEX [Concomitant]
     Active Substance: ANASTROZOLE
  7. ARMOUR THYROID [Concomitant]
     Active Substance: THYROID, PORCINE
  8. VITAMIN B12 [Concomitant]
     Active Substance: CYANOCOBALAMIN
  9. LASIX [Concomitant]
     Active Substance: FUROSEMIDE
  10. NORPACE [Concomitant]
     Active Substance: DISOPYRAMIDE PHOSPHATE
  11. IBRANCE [Suspect]
     Active Substance: PALBOCICLIB
     Indication: BREAST CANCER
     Route: 048
     Dates: start: 20200218, end: 20200307
  12. KLOR-CON [Concomitant]
     Active Substance: POTASSIUM CHLORIDE
  13. LOSARTAN. [Concomitant]
     Active Substance: LOSARTAN
  14. TRIAMCINOLONE [Concomitant]
     Active Substance: TRIAMCINOLONE
  15. XARELTO [Concomitant]
     Active Substance: RIVAROXABAN
  16. ATENOLOL. [Concomitant]
     Active Substance: ATENOLOL

REACTIONS (1)
  - Pneumonia [None]

NARRATIVE: CASE EVENT DATE: 20200307
